FAERS Safety Report 8086368-6 (Version None)
Quarter: 2012Q1

REPORT INFORMATION
  Report Type: 
  Country: None (occurrence: None)
  Receive Date: 20120128
  Receipt Date: 20110426
  Transmission Date: 20120608
  Serious: No
  Sender: FDA-Public Use
  Company Number: US-ABBOTT-11P-163-0721967-00

PATIENT
  Age: 13 Year
  Sex: Male

DRUGS (3)
  1. HUMIRA [Suspect]
     Indication: CROHN'S DISEASE
     Dates: start: 20110415, end: 20110415
  2. HUMIRA [Suspect]
     Dosage: 80MG LOADING DOSE
     Dates: start: 20110401, end: 20110401
  3. HUMIRA [Suspect]
     Dosage: 160 MG LOADING DOSE
     Dates: start: 20110318, end: 20110318

REACTIONS (1)
  - INCORRECT DOSE ADMINISTERED [None]
